FAERS Safety Report 8836535 (Version 1)
Quarter: 2012Q4

REPORT INFORMATION
  Report Type: Spontaneous
  Country: US (occurrence: None)
  Receive Date: 20121009
  Receipt Date: 20121009
  Transmission Date: 20130627
  Serious: No
  Sender: FDA-Public Use
  Company Number: 2012-00163

PATIENT
  Age: 74 Year
  Sex: Female
  Weight: 72.58 kg

DRUGS (3)
  1. ZICAM COLD REMEDY RAPIDMELTS [Suspect]
     Indication: COLD
     Dates: start: 20120720, end: 20120728
  2. ESCITALOPRAM [Concomitant]
  3. LORATADINE [Concomitant]

REACTIONS (1)
  - Ageusia [None]
